FAERS Safety Report 4630347-5 (Version None)
Quarter: 2005Q2

REPORT INFORMATION
  Report Type: 
  Country: None (occurrence: None)
  Receive Date: 20050405
  Receipt Date: 20050405
  Transmission Date: 20051028
  Serious: Yes (Life-Threatening, Hospitalization)
  Sender: FDA-Public Use
  Company Number: None

PATIENT
  Sex: Male
  Weight: 91.173 kg

DRUGS (2)
  1. CARMUSTINE [Suspect]
     Indication: ASTROCYTOMA
     Dosage: 170MG,IV
     Route: 042
     Dates: start: 20041130, end: 20041202
  2. RADIATION [Concomitant]

REACTIONS (4)
  - BRAIN OEDEMA [None]
  - CONFUSIONAL STATE [None]
  - HEADACHE [None]
  - INCONTINENCE [None]
